FAERS Safety Report 23507832 (Version 8)
Quarter: 2025Q4

REPORT INFORMATION
  Report Type: Spontaneous
  Country: EU (occurrence: EU)
  Receive Date: 20240209
  Receipt Date: 20251217
  Transmission Date: 20260117
  Serious: Yes (Hospitalization, Other)
  Sender: UCB
  Company Number: EU-UCBSA-2024005981

PATIENT
  Age: 9 Year
  Weight: 23 kg

DRUGS (7)
  1. FINTEPLA [Suspect]
     Active Substance: FENFLURAMINE
     Indication: Lennox-Gastaut syndrome
     Dosage: 0.2 MILLIGRAM/KILOGRAM
  2. KEPPRA [Suspect]
     Active Substance: LEVETIRACETAM
     Indication: Product used for unknown indication
     Dosage: 40 MILLIGRAM/KILOGRAM
  3. RIVOTRIL [Concomitant]
     Active Substance: CLONAZEPAM
     Indication: Product used for unknown indication
     Dosage: UNK
  4. LAMICTAL [Concomitant]
     Active Substance: LAMOTRIGINE
     Indication: Product used for unknown indication
     Dosage: 6.5 MILLIGRAM/KILOGRAM
  5. ZONEGRAN [Concomitant]
     Active Substance: ZONISAMIDE
     Indication: Product used for unknown indication
     Dosage: 5 MILLIGRAM/KILOGRAM
  6. CANNABIDIOL [Concomitant]
     Active Substance: CANNABIDIOL
     Indication: Product used for unknown indication
     Dosage: 20 MILLIGRAM/KILOGRAM
  7. CLOBAZAM [Concomitant]
     Active Substance: CLOBAZAM
     Indication: Product used for unknown indication
     Dosage: UNK

REACTIONS (6)
  - Pulmonary hypertension [Unknown]
  - Seizure [Recovering/Resolving]
  - Lung disorder [Unknown]
  - Anomalous pulmonary venous connection [Unknown]
  - Tricuspid valve stenosis [Unknown]
  - Dependence on respirator [Unknown]
